FAERS Safety Report 14128097 (Version 2)
Quarter: 2017Q4

REPORT INFORMATION
  Report Type: Spontaneous
  Country: US (occurrence: US)
  Receive Date: 20171026
  Receipt Date: 20171031
  Transmission Date: 20180321
  Serious: Yes (Other)
  Sender: FDA-Public Use
  Company Number: US-BRISTOL-MYERS SQUIBB COMPANY-BMS-2017-094101

PATIENT
  Age: 67 Year
  Sex: Male

DRUGS (1)
  1. KENALOG-40 [Suspect]
     Active Substance: TRIAMCINOLONE ACETONIDE
     Indication: RETINAL VASCULITIS
     Dosage: UNK, QWK
     Route: 031
     Dates: start: 20171013, end: 20171013

REACTIONS (3)
  - Endophthalmitis [Recovering/Resolving]
  - Product use in unapproved indication [Unknown]
  - Incorrect route of drug administration [Unknown]

NARRATIVE: CASE EVENT DATE: 20171014
